FAERS Safety Report 13135809 (Version 10)
Quarter: 2018Q4

REPORT INFORMATION
  Report Type: Report from Study
  Country: US (occurrence: US)
  Receive Date: 20170120
  Receipt Date: 20181025
  Transmission Date: 20190204
  Serious: Yes (Hospitalization, Other)
  Sender: FDA-Public Use
  Company Number: US-ACTELION-A-US2017-148685

PATIENT
  Age: 60 Year
  Sex: Female

DRUGS (14)
  1. VITAMIN D3 [Concomitant]
     Active Substance: CHOLECALCIFEROL
  2. ACETAMINOPHEN. [Concomitant]
     Active Substance: ACETAMINOPHEN
  3. GABAPENTIN. [Concomitant]
     Active Substance: GABAPENTIN
  4. HUMALOG [Concomitant]
     Active Substance: INSULIN LISPRO
  5. OPSUMIT [Suspect]
     Active Substance: MACITENTAN
     Indication: PULMONARY ARTERIAL HYPERTENSION
     Dosage: 10 MG, QD
     Route: 048
     Dates: start: 20150416, end: 20180724
  6. ADVAIR HFA [Concomitant]
     Active Substance: FLUTICASONE PROPIONATE\SALMETEROL XINAFOATE
  7. TACROLIMUS. [Concomitant]
     Active Substance: TACROLIMUS
  8. MYFORTIC [Concomitant]
     Active Substance: MYCOPHENOLATE SODIUM
  9. PREDNISONE. [Concomitant]
     Active Substance: PREDNISONE
  10. ZANTAC [Concomitant]
     Active Substance: RANITIDINE HYDROCHLORIDE
  11. LANTUS [Concomitant]
     Active Substance: INSULIN GLARGINE
  12. NORVASC [Concomitant]
     Active Substance: AMLODIPINE BESYLATE
  13. PROAIR RESPICLICK [Concomitant]
     Active Substance: ALBUTEROL SULFATE
  14. VALCYTE [Concomitant]
     Active Substance: VALGANCICLOVIR HYDROCHLORIDE

REACTIONS (16)
  - Fatigue [Recovered/Resolved]
  - Peripheral swelling [Not Recovered/Not Resolved]
  - Osteomyelitis [Not Recovered/Not Resolved]
  - Skin ulcer [Recovering/Resolving]
  - Dyspnoea [Recovered/Resolved]
  - Transplant rejection [Unknown]
  - Renal transplant [Recovered/Resolved]
  - Toe amputation [Recovered/Resolved]
  - Cervix enlargement [Unknown]
  - Cellulitis [Recovering/Resolving]
  - Palpitations [Recovered/Resolved]
  - Foot fracture [Unknown]
  - Vasculitis [Recovering/Resolving]
  - Purpura [Recovering/Resolving]
  - Blood creatinine increased [Unknown]
  - Neuropathic arthropathy [Unknown]

NARRATIVE: CASE EVENT DATE: 2016
